FAERS Safety Report 4644553-7 (Version None)
Quarter: 2005Q2

REPORT INFORMATION
  Report Type: 
  Country: None (occurrence: None)
  Receive Date: 20050425
  Receipt Date: 20050425
  Transmission Date: 20051028
  Serious: Yes (Hospitalization, Other)
  Sender: FDA-Public Use
  Company Number: None

PATIENT
  Sex: Female
  Weight: 68 kg

DRUGS (8)
  1. STEM CELL INFUSION TISSUE [Suspect]
     Route: 050
     Dates: start: 20040817
  2. SEPTRA DS [Concomitant]
  3. PREDNISONE TAB [Concomitant]
  4. MYCOPHENOLATE [Concomitant]
  5. ACYCLOVIR [Concomitant]
  6. FLUCONAZOLE [Concomitant]
  7. LEVOFLOXACIN [Concomitant]
  8. VALACYCLOVIR HCL [Concomitant]

REACTIONS (9)
  - ATELECTASIS [None]
  - COMPUTERISED TOMOGRAM ABNORMAL [None]
  - DYSPHAGIA [None]
  - DYSPNOEA [None]
  - GRAFT VERSUS HOST DISEASE [None]
  - MUCOSAL INFLAMMATION [None]
  - OBSTRUCTIVE AIRWAYS DISORDER [None]
  - OESOPHAGITIS [None]
  - PULMONARY FIBROSIS [None]
